FAERS Safety Report 12760031 (Version 1)
Quarter: 2016Q3

REPORT INFORMATION
  Report Type: Spontaneous
  Country: US (occurrence: US)
  Receive Date: 20160919
  Receipt Date: 20160919
  Transmission Date: 20161109
  Serious: Yes (Other)
  Sender: FDA-Public Use
  Company Number: US-ABBVIE-16P-163-1729772-00

PATIENT
  Age: 51 Year
  Sex: Female
  Weight: 108.96 kg

DRUGS (1)
  1. SYNTHROID [Suspect]
     Active Substance: LEVOTHYROXINE SODIUM
     Indication: HYPOTHYROIDISM
     Route: 048
     Dates: start: 201404

REACTIONS (2)
  - Thyroid cancer recurrent [Unknown]
  - Product packaging quantity issue [Recovered/Resolved]

NARRATIVE: CASE EVENT DATE: 201509
